FAERS Safety Report 12470991 (Version 2)
Quarter: 2024Q2

REPORT INFORMATION
  Report Type: Spontaneous
  Country: US (occurrence: US)
  Receive Date: 20160616
  Receipt Date: 20240426
  Transmission Date: 20240715
  Serious: Yes (Hospitalization, Other)
  Sender: FDA-Public Use
  Company Number: US-MLMSERVICE-20160606-0067239-1

PATIENT
  Age: 66 Year
  Sex: Male

DRUGS (5)
  1. TACROLIMUS [Suspect]
     Active Substance: TACROLIMUS
     Indication: Immunosuppression
     Route: 065
  2. MYCOPHENOLIC ACID [Suspect]
     Active Substance: MYCOPHENOLIC ACID
     Indication: Immunosuppression
     Route: 065
  3. PREDNISONE [Suspect]
     Active Substance: PREDNISONE
     Indication: Immunosuppression
     Route: 065
  4. Valaganciclovir [Concomitant]
     Indication: Prophylaxis
     Route: 065
  5. Sulphamethoxazole, Trimethoprim [Concomitant]
     Indication: Prophylaxis
     Route: 065

REACTIONS (2)
  - Nocardiosis [Recovering/Resolving]
  - Nocardiosis [Recovering/Resolving]
